FAERS Safety Report 14334916 (Version 2)
Quarter: 2018Q1

REPORT INFORMATION
  Report Type: Spontaneous
  Country: US (occurrence: US)
  Receive Date: 20171229
  Receipt Date: 20180105
  Transmission Date: 20180509
  Serious: No
  Sender: FDA-Public Use
  Company Number: US-CELGENEUS-USA-20171210053

PATIENT
  Age: 42 Year
  Sex: Female
  Weight: 47.67 kg

DRUGS (2)
  1. OTEZLA [Suspect]
     Active Substance: APREMILAST
     Dosage: HALF TABLET FOUR TIMES DAILY
     Route: 048
     Dates: start: 20171212
  2. OTEZLA [Suspect]
     Active Substance: APREMILAST
     Indication: PSORIASIS
     Dosage: HALF TABLET FOUR TIMES DAILY
     Route: 048
     Dates: start: 20170810, end: 20170914

REACTIONS (6)
  - Respiratory tract congestion [Recovered/Resolved]
  - Gingival swelling [Recovered/Resolved]
  - Drug dose omission [Unknown]
  - Cough [Recovered/Resolved]
  - Nausea [Recovering/Resolving]
  - Dizziness [Not Recovered/Not Resolved]

NARRATIVE: CASE EVENT DATE: 201708
